FAERS Safety Report 17362578 (Version 2)
Quarter: 2020Q1

REPORT INFORMATION
  Report Type: Not Available
  Country: US (occurrence: US)
  Receive Date: 20200203
  Receipt Date: 20200313
  Transmission Date: 20200409
  Serious: No
  Sender: FDA-Public Use
  Company Number: US-NEUROCRINE BIOSCIENCES INC.-2020NBI00220

PATIENT
  Sex: Male
  Weight: 82.6 kg

DRUGS (4)
  1. INGREZZA [Suspect]
     Active Substance: VALBENAZINE
     Indication: TARDIVE DYSKINESIA
     Route: 048
     Dates: start: 20171003, end: 20171010
  2. INGREZZA [Suspect]
     Active Substance: VALBENAZINE
     Route: 048
     Dates: start: 20171011
  3. INGREZZA [Suspect]
     Active Substance: VALBENAZINE
     Route: 048
  4. INGREZZA [Suspect]
     Active Substance: VALBENAZINE
     Dosage: 40 X 2
     Route: 048

REACTIONS (7)
  - Indifference [Unknown]
  - Bradykinesia [Unknown]
  - Oculogyric crisis [Recovered/Resolved]
  - Tardive dyskinesia [Unknown]
  - Feeling abnormal [Unknown]
  - Somnolence [Unknown]
  - Tic [Unknown]
